FAERS Safety Report 6495094-6 (Version None)
Quarter: 2009Q4

REPORT INFORMATION
  Report Type: 
  Country: None (occurrence: None)
  Receive Date: 20091214
  Receipt Date: 20090430
  Transmission Date: 20100525
  Serious: No
  Sender: FDA-Public Use
  Company Number: US-BRISTOL-MYERS SQUIBB COMPANY-14606826

PATIENT
  Age: 63 Year
  Sex: Female

DRUGS (4)
  1. ABILIFY [Suspect]
     Indication: BIPOLAR DISORDER
     Dosage: 2.5MG ON 02APR2009 DOSE WAS INCREASED TO 5MG ON 16APR2009 DOSE HAS BEEN LOWERED BACK TO 2.5MG
     Dates: start: 20090402
  2. ZYPREXA [Concomitant]
  3. CYMBALTA [Concomitant]
  4. GABAPENTIN [Concomitant]

REACTIONS (3)
  - ABDOMINAL DISCOMFORT [None]
  - INFLUENZA LIKE ILLNESS [None]
  - NAUSEA [None]
